FAERS Safety Report 5344542-3 (Version None)
Quarter: 2007Q2

REPORT INFORMATION
  Report Type: 
  Country: None (occurrence: None)
  Receive Date: 20070604
  Receipt Date: 20070531
  Transmission Date: 20071010
  Serious: Yes (Hospitalization)
  Sender: FDA-Public Use
  Company Number: US-MERCK-0706USA00102

PATIENT
  Sex: Female

DRUGS (2)
  1. JANUVIA [Suspect]
     Indication: DIABETES MELLITUS
     Route: 048
  2. METFORMIN [Concomitant]
     Route: 065

REACTIONS (4)
  - ANURIA [None]
  - BLADDER DISORDER [None]
  - BLOOD CREATININE INCREASED [None]
  - RENAL DISORDER [None]
